FAERS Safety Report 11734322 (Version 1)
Quarter: 2015Q4

REPORT INFORMATION
  Report Type: Spontaneous
  Country: US (occurrence: None)
  Receive Date: 20151112
  Receipt Date: 20151112
  Transmission Date: 20160304
  Serious: No
  Sender: FDA-Public Use
  Company Number: None

PATIENT

DRUGS (2)
  1. INFUSOMAT SPACE INFUSION PUMP [Concomitant]
  2. OXYTOCIN B. BRAUN [Suspect]
     Active Substance: OXYTOCIN
     Indication: DRUG THERAPY

REACTIONS (2)
  - Circumstance or information capable of leading to device use error [None]
  - Device issue [None]

NARRATIVE: CASE EVENT DATE: 20151110
